FAERS Safety Report 7757098-2 (Version None)
Quarter: 2011Q3

REPORT INFORMATION
  Report Type: 
  Country: None (occurrence: None)
  Receive Date: 20110916
  Receipt Date: 20100714
  Transmission Date: 20111222
  Serious: No
  Sender: FDA-Public Use
  Company Number: US-BAYER-201030100NA

PATIENT
  Sex: Female

DRUGS (6)
  1. TRAZODONE HCL [Concomitant]
  2. MIRENA [Suspect]
     Indication: CONTRACEPTION
     Dosage: UNK
     Dates: start: 20081201
  3. METHYLPHENIDATE [Concomitant]
  4. ZOLOFT [Concomitant]
  5. VALTREX [Concomitant]
  6. CETIRIZINE HCL [Concomitant]

REACTIONS (1)
  - RASH [None]
